FAERS Safety Report 4436185-0 (Version None)
Quarter: 2004Q3

REPORT INFORMATION
  Report Type: 
  Country: None (occurrence: None)
  Receive Date: 20040830
  Receipt Date: 20040507
  Transmission Date: 20050211
  Serious: No
  Sender: FDA-Public Use
  Company Number: US-BRISTOL-MYERS SQUIBB COMPANY-12582151

PATIENT
  Age: 21 Year
  Sex: Male

DRUGS (5)
  1. ERBITUX [Suspect]
     Indication: COLORECTAL CANCER
     Route: 042
     Dates: start: 20040505, end: 20040505
  2. CARMUSTINE [Suspect]
     Route: 042
     Dates: start: 20040505, end: 20040505
  3. DIPHENHYDRAMINE HCL [Concomitant]
     Indication: PREMEDICATION
     Route: 042
     Dates: start: 20040505, end: 20040505
  4. DEXAMETHASONE [Concomitant]
     Indication: PREMEDICATION
     Route: 042
     Dates: start: 20040505, end: 20040505
  5. CIMETIDINE [Concomitant]
     Indication: PREMEDICATION
     Route: 042
     Dates: start: 20040505, end: 20040505

REACTIONS (3)
  - HOARSENESS [None]
  - PHARYNGOLARYNGEAL PAIN [None]
  - RASH [None]
